FAERS Safety Report 10286161 (Version 2)
Quarter: 2014Q3

REPORT INFORMATION
  Report Type: Spontaneous
  Country: US (occurrence: US)
  Receive Date: 20140709
  Receipt Date: 20140806
  Transmission Date: 20150326
  Serious: Yes (Hospitalization)
  Sender: FDA-Public Use
  Company Number: US-ASTELLAS-2014US008023

PATIENT
  Age: 74 Year
  Sex: Male

DRUGS (1)
  1. XTANDI [Suspect]
     Active Substance: ENZALUTAMIDE
     Indication: PROSTATE CANCER
     Route: 048
     Dates: start: 20140122

REACTIONS (4)
  - Haematuria [Recovering/Resolving]
  - Urinary retention [Unknown]
  - Thrombosis [Unknown]
  - Cystitis radiation [Recovering/Resolving]

NARRATIVE: CASE EVENT DATE: 20140624
